FAERS Safety Report 9308987 (Version 1)
Quarter: 2013Q2

REPORT INFORMATION
  Report Type: Report from Study
  Country: US (occurrence: US)
  Receive Date: 20130524
  Receipt Date: 20130524
  Transmission Date: 20140414
  Serious: Yes (Hospitalization)
  Sender: FDA-Public Use
  Company Number: US-US-EMD SERONO, INC.-7212813

PATIENT
  Sex: Female

DRUGS (2)
  1. REBIF [Suspect]
     Indication: MULTIPLE SCLEROSIS
     Dates: start: 200803, end: 200810
  2. REBIF [Suspect]
     Route: 058
     Dates: start: 20120322

REACTIONS (5)
  - Throat tightness [Recovering/Resolving]
  - Choking [Recovering/Resolving]
  - Muscle strain [Recovering/Resolving]
  - Central nervous system lesion [Unknown]
  - Injection site erythema [Unknown]
